FAERS Safety Report 6187420-2 (Version None)
Quarter: 2009Q2

REPORT INFORMATION
  Report Type: 
  Country: None (occurrence: None)
  Receive Date: 20090512
  Receipt Date: 20090505
  Transmission Date: 20091009
  Serious: Yes (Other)
  Sender: FDA-Public Use
  Company Number: NL-TEVA-194255ISR

PATIENT
  Sex: Female
  Weight: 64 kg

DRUGS (4)
  1. METHOTREXATE [Suspect]
     Indication: RHEUMATOID ARTHRITIS
     Dosage: 25MG/ML FLACON 20 ML
     Dates: start: 20030401, end: 20090320
  2. PREDNISONE [Suspect]
     Indication: RHEUMATOID ARTHRITIS
     Dates: start: 20090112
  3. MELOXICAM [Concomitant]
     Dates: start: 20040601
  4. OMEPRAZOLE [Concomitant]
     Dates: start: 20040101

REACTIONS (1)
  - BONE DISORDER [None]
